FAERS Safety Report 24264163 (Version 1)
Quarter: 2024Q3

REPORT INFORMATION
  Report Type: Report from Study
  Country: US (occurrence: US)
  Receive Date: 20240829
  Receipt Date: 20240829
  Transmission Date: 20241017
  Serious: Yes (Hospitalization)
  Sender: OTSUKA
  Company Number: US-OTSUKA-2024_023445

PATIENT
  Age: 49 Year
  Sex: Female

DRUGS (3)
  1. TOLVAPTAN [Suspect]
     Active Substance: TOLVAPTAN
     Indication: Blood osmolarity decreased
     Dosage: 7.5 MG (4 TIMES A WEEK)
     Route: 065
     Dates: start: 202404
  2. TOLVAPTAN [Suspect]
     Active Substance: TOLVAPTAN
     Indication: Hypomagnesaemia
  3. TOLVAPTAN [Suspect]
     Active Substance: TOLVAPTAN
     Indication: Acute kidney injury

REACTIONS (5)
  - Hyponatraemia [Recovered/Resolved]
  - Malaise [Recovered/Resolved]
  - Malaise [Not Recovered/Not Resolved]
  - Off label use [Not Recovered/Not Resolved]
  - Wrong technique in product usage process [Not Recovered/Not Resolved]

NARRATIVE: CASE EVENT DATE: 20240701
